FAERS Safety Report 14150646 (Version 1)
Quarter: 2017Q4

REPORT INFORMATION
  Report Type: Spontaneous
  Country: US (occurrence: US)
  Receive Date: 20171101
  Receipt Date: 20171101
  Transmission Date: 20180321
  Serious: No
  Sender: FDA-Public Use
  Company Number: US-ELI_LILLY_AND_COMPANY-US201710009945

PATIENT
  Sex: Male

DRUGS (1)
  1. HUMALOG [Suspect]
     Active Substance: INSULIN LISPRO
     Indication: TYPE 1 DIABETES MELLITUS
     Dosage: 0.9 U, EVERY HOUR (WITH SLIDING SCALE FOR CARBOHYDRATES AND MEALS)

REACTIONS (2)
  - Blood glucose increased [Not Recovered/Not Resolved]
  - Viral infection [Not Recovered/Not Resolved]
